FAERS Safety Report 7648815-0 (Version None)
Quarter: 2011Q3

REPORT INFORMATION
  Report Type: 
  Country: None (occurrence: None)
  Receive Date: 20110801
  Receipt Date: 20110726
  Transmission Date: 20111222
  Serious: Yes (Other)
  Sender: FDA-Public Use
  Company Number: US-PFIZER INC-2011170196

PATIENT
  Sex: Female

DRUGS (2)
  1. NEXIUM [Concomitant]
     Indication: ABDOMINAL DISCOMFORT
     Dosage: UNK
  2. GLIPIZIDE [Suspect]
     Dosage: 10 MG, 2X/DAY

REACTIONS (2)
  - BLOOD GLUCOSE ABNORMAL [None]
  - MEDICATION RESIDUE [None]
